FAERS Safety Report 9911618 (Version 2)
Quarter: 2014Q1

REPORT INFORMATION
  Report Type: Report from Study
  Country: NL (occurrence: NL)
  Receive Date: 20140219
  Receipt Date: 20140319
  Transmission Date: 20141002
  Serious: Yes (Other)
  Sender: FDA-Public Use
  Company Number: PHHY2014NL019593

PATIENT
  Age: 72 Year
  Sex: Male

DRUGS (4)
  1. ZOMETA [Suspect]
     Indication: PROSTATE CANCER METASTATIC
     Dosage: 4 MG/ 100ML ONCE EVERY 4 WEEKS
     Route: 042
  2. ZOMETA [Suspect]
     Dosage: 4 MG/ 100ML ONCE EVERY 4 WEEKS
     Route: 042
     Dates: start: 20131001
  3. ZOMETA [Suspect]
     Dosage: 4 MG/ 100ML ONCE EVERY 4 WEEKS
     Route: 042
     Dates: start: 20140116
  4. ZOMETA [Suspect]
     Dosage: 4 MG/ 100ML ONCE EVERY 4 WEEKS
     Route: 042
     Dates: start: 20140214

REACTIONS (1)
  - Neoplasm [Not Recovered/Not Resolved]
